FAERS Safety Report 10302009 (Version 1)
Quarter: 2014Q3

REPORT INFORMATION
  Report Type: Spontaneous
  Country: US (occurrence: None)
  Receive Date: 20140709
  Receipt Date: 20140709
  Transmission Date: 20150326
  Serious: Yes (Disabling)
  Sender: FDA-Public Use
  Company Number: None

PATIENT
  Age: 25 Year
  Sex: Male
  Weight: 63.5 kg

DRUGS (2)
  1. BIAXIN [Suspect]
     Active Substance: CLARITHROMYCIN
     Indication: BRONCHITIS
     Dosage: 1 PILL, TWICE DAILY, TAKEN  BY MOUTH
     Route: 048
     Dates: start: 20140610, end: 20140620
  2. BIAXIN [Suspect]
     Active Substance: CLARITHROMYCIN
     Indication: OTITIS MEDIA
     Dosage: 1 PILL, TWICE DAILY, TAKEN  BY MOUTH
     Route: 048
     Dates: start: 20140610, end: 20140620

REACTIONS (6)
  - Insomnia [None]
  - Anosmia [None]
  - Diarrhoea [None]
  - Dysgeusia [None]
  - Decreased appetite [None]
  - Ageusia [None]

NARRATIVE: CASE EVENT DATE: 20140614
